FAERS Safety Report 8548395-1 (Version None)
Quarter: 2012Q3

REPORT INFORMATION
  Report Type: 
  Country: None (occurrence: None)
  Receive Date: 20120730
  Receipt Date: 20120720
  Transmission Date: 20120928
  Serious: Yes (Other)
  Sender: FDA-Public Use
  Company Number: US-JNJFOC-20101002827

PATIENT
  Sex: Female
  Weight: 77.11 kg

DRUGS (7)
  1. ANTIBIOTICS NOS [Concomitant]
     Route: 065
  2. EFFEXOR [Concomitant]
     Indication: DEPRESSION
     Route: 048
     Dates: start: 20091201, end: 20100901
  3. PREDNISONE [Concomitant]
     Indication: SINUS HEADACHE
     Dosage: 4 TABLETS ON DAYS 1 AND 2, 3 TABLETS ON DAYS 3 AND 4; AND 1 TABLET FOR NEXT 2DAYS
     Route: 048
     Dates: start: 20101005, end: 20101008
  4. PENICILLIN [Concomitant]
     Route: 065
  5. LEVAQUIN [Suspect]
     Indication: SINUSITIS
     Dosage: EVENT OCCURRED AFTER PATIENT TOOK THE SECOND PILL
     Route: 048
     Dates: start: 20101005, end: 20101007
  6. PREDNISONE [Concomitant]
     Indication: EUSTACHIAN TUBE DISORDER
     Dosage: 4 TABLETS ON DAYS 1 AND 2, 3 TABLETS ON DAYS 3 AND 4; AND 1 TABLET FOR NEXT 2DAYS
     Route: 048
     Dates: start: 20101005, end: 20101008
  7. CEFODIZIME DISODIUM [Concomitant]
     Route: 065

REACTIONS (4)
  - PAIN IN JAW [None]
  - EAR PAIN [None]
  - SKIN DISCOLOURATION [None]
  - NAIL DISCOLOURATION [None]
